FAERS Safety Report 8167980-2 (Version None)
Quarter: 2012Q1

REPORT INFORMATION
  Report Type: 
  Country: None (occurrence: None)
  Receive Date: 20120227
  Receipt Date: 20120216
  Transmission Date: 20120608
  Serious: Yes (Other)
  Sender: FDA-Public Use
  Company Number: PT-VIIV HEALTHCARE LIMITED-B0782398A

PATIENT
  Sex: Male
  Weight: 76 kg

DRUGS (3)
  1. ABACAVIR SULFATE/LAMIVUDINE [Suspect]
     Indication: ANTIRETROVIRAL THERAPY
     Dosage: 1TAB PER DAY
     Route: 048
     Dates: start: 20120111
  2. NEVIRAPINE [Concomitant]
     Indication: HIV INFECTION
     Dosage: 200MG TWICE PER DAY
     Route: 048
     Dates: start: 20111102
  3. LOPID [Concomitant]
     Indication: HYPERTRIGLYCERIDAEMIA
     Dosage: 300MG PER DAY
     Route: 048
     Dates: start: 20111102

REACTIONS (14)
  - THROAT IRRITATION [None]
  - DYSPNOEA [None]
  - HEADACHE [None]
  - RESPIRATORY DISORDER [None]
  - C-REACTIVE PROTEIN INCREASED [None]
  - PRODUCTIVE COUGH [None]
  - BLOOD CREATINE PHOSPHOKINASE INCREASED [None]
  - VOMITING [None]
  - MYALGIA [None]
  - PYREXIA [None]
  - HYPERHIDROSIS [None]
  - MYOGLOBIN BLOOD INCREASED [None]
  - PNEUMONIA [None]
  - UPPER RESPIRATORY TRACT INFECTION [None]
